FAERS Safety Report 4360272-9 (Version None)
Quarter: 2004Q2

REPORT INFORMATION
  Report Type: 
  Country: None (occurrence: None)
  Receive Date: 20040514
  Receipt Date: 20040504
  Transmission Date: 20050107
  Serious: Yes (Death)
  Sender: FDA-Public Use
  Company Number: US-JNJFOC-20040404099

PATIENT
  Age: 78 Year
  Sex: Male

DRUGS (1)
  1. RISPERDAL [Suspect]
     Dosage: 0.5 MG, ORAL
     Route: 048
     Dates: end: 20040328

REACTIONS (1)
  - DEATH [None]
